FAERS Safety Report 17506517 (Version 10)
Quarter: 2025Q3

REPORT INFORMATION
  Report Type: Spontaneous
  Country: US (occurrence: US)
  Receive Date: 20200305
  Receipt Date: 20250808
  Transmission Date: 20251021
  Serious: Yes (Other)
  Sender: ROCHE
  Company Number: US-ROCHE-2468012

PATIENT
  Age: 61 Year
  Sex: Female
  Weight: 90.72 kg

DRUGS (4)
  1. XOLAIR PFS [Suspect]
     Active Substance: OMALIZUMAB
     Indication: Asthma
     Dosage: STRENGTH: 150 MG/ML
     Route: 058
     Dates: start: 201903
  2. XOLAIR PFS [Suspect]
     Active Substance: OMALIZUMAB
     Dosage: STRENGTH: 150 MG/ML
     Route: 058
     Dates: start: 202001
  3. TAKHZYRO PFS [Concomitant]
     Route: 065
     Dates: start: 20230107
  4. ICATIBANT [Concomitant]
     Active Substance: ICATIBANT ACETATE
     Dates: start: 20230103

REACTIONS (22)
  - Abdominal distension [Recovered/Resolved]
  - Headache [Not Recovered/Not Resolved]
  - Joint swelling [Recovered/Resolved]
  - Eye swelling [Unknown]
  - Swelling [Unknown]
  - Peripheral swelling [Recovered/Resolved]
  - Pharyngeal swelling [Unknown]
  - Depression [Unknown]
  - Hereditary angioedema [Unknown]
  - Pain in extremity [Unknown]
  - Swelling face [Unknown]
  - Fatigue [Unknown]
  - Diarrhoea [Unknown]
  - Lip blister [Unknown]
  - Weight decreased [Unknown]
  - Asthma [Unknown]
  - Brain oedema [Unknown]
  - Dizziness [Unknown]
  - Limb discomfort [Unknown]
  - Vomiting [Unknown]
  - Weight increased [Unknown]
  - Product dose omission in error [Unknown]

NARRATIVE: CASE EVENT DATE: 20201029
